FAERS Safety Report 8290682-9 (Version None)
Quarter: 2012Q2

REPORT INFORMATION
  Report Type: 
  Country: None (occurrence: None)
  Receive Date: 20120417
  Receipt Date: 20110519
  Transmission Date: 20120825
  Serious: No
  Sender: FDA-Public Use
  Company Number: US-ASTRAZENECA-2011SE31326

PATIENT
  Age: 51 Year
  Sex: Female

DRUGS (1)
  1. NEXIUM [Suspect]
     Route: 048

REACTIONS (6)
  - APHAGIA [None]
  - DYSPHAGIA [None]
  - ORAL DISCOMFORT [None]
  - THROAT IRRITATION [None]
  - CHEST PAIN [None]
  - DRUG DOSE OMISSION [None]
